FAERS Safety Report 9125326 (Version 1)
Quarter: 2013Q1

REPORT INFORMATION
  Report Type: Spontaneous
  Country: US (occurrence: US)
  Receive Date: 20130227
  Receipt Date: 20130227
  Transmission Date: 20140127
  Serious: Yes (Other)
  Sender: FDA-Public Use
  Company Number: US-BAYER-2013-023785

PATIENT
  Age: 70 Year
  Sex: Female
  Weight: 112.2 kg

DRUGS (6)
  1. ALEVE CAPLET/TABLET,MIDOL EXTENDED RELIEF CAPLET [Suspect]
     Dosage: 2 DF, UNK
     Route: 048
     Dates: end: 20130220
  2. GLUCOSAMINE [Concomitant]
  3. B12 [Concomitant]
  4. POTASSIUM [Concomitant]
  5. BABY ASPIRIN [Concomitant]
  6. MAGNESIUM [Concomitant]

REACTIONS (6)
  - Blood pressure increased [Not Recovered/Not Resolved]
  - Sinus headache [Recovered/Resolved]
  - Headache [Recovered/Resolved]
  - Heart rate increased [Not Recovered/Not Resolved]
  - Vertigo [None]
  - Incorrect drug administration duration [None]
